FAERS Safety Report 10068564 (Version 2)
Quarter: 2014Q2

REPORT INFORMATION
  Report Type: Report from Study
  Country: AU (occurrence: AU)
  Receive Date: 20140409
  Receipt Date: 20140428
  Transmission Date: 20141212
  Serious: Yes (Other)
  Sender: FDA-Public Use
  Company Number: PHHY2014AU040978

PATIENT
  Sex: Male

DRUGS (2)
  1. STI571 [Suspect]
     Indication: GRAFT VERSUS HOST DISEASE
     Dosage: UNK UKN, DAILY
     Route: 048
     Dates: start: 2009, end: 201006
  2. STI571 [Suspect]
     Indication: OFF LABEL USE

REACTIONS (2)
  - Graft versus host disease [Not Recovered/Not Resolved]
  - Disease recurrence [Not Recovered/Not Resolved]
